FAERS Safety Report 5833604-X (Version None)
Quarter: 2008Q3

REPORT INFORMATION
  Report Type: 
  Country: None (occurrence: None)
  Receive Date: 20080805
  Receipt Date: 20080731
  Transmission Date: 20090109
  Serious: Yes (Other)
  Sender: FDA-Public Use
  Company Number: US-AVENTIS-200814788US

PATIENT
  Sex: Female
  Weight: 63.5 kg

DRUGS (2)
  1. LOVENOX [Suspect]
     Dates: start: 20080728, end: 20080730
  2. COUMADIN [Suspect]
     Dates: start: 20080728, end: 20080730

REACTIONS (1)
  - INTERNATIONAL NORMALISED RATIO INCREASED [None]
